FAERS Safety Report 10920922 (Version 2)
Quarter: 2015Q1

REPORT INFORMATION
  Report Type: Report from Study
  Country: PT (occurrence: PT)
  Receive Date: 20150317
  Receipt Date: 20150320
  Transmission Date: 20150721
  Serious: Yes (Hospitalization)
  Sender: FDA-Public Use
  Company Number: PT-ROCHE-1552599

PATIENT
  Age: 77 Year
  Sex: Female
  Weight: 52 kg

DRUGS (3)
  1. BLINDED RANIBIZUMAB [Suspect]
     Active Substance: RANIBIZUMAB
     Dosage: DOSE INTERRUPTED
     Route: 050
     Dates: end: 20150311
  2. BLINDED RANIBIZUMAB [Suspect]
     Active Substance: RANIBIZUMAB
     Dosage: PATIENT WAS RECEIVED MOST RECENT DOSE OF STUDY MEDICATION ON 11/FEB/2015 PRIOR TO THE EVENT ONSET.
     Route: 050
     Dates: start: 20150211, end: 20150211
  3. BLINDED RANIBIZUMAB [Suspect]
     Active Substance: RANIBIZUMAB
     Indication: AGE-RELATED MACULAR DEGENERATION
     Dosage: PATIENT WAS RECEIVED MOST RECENT DOSE OF STUDY MEDICATION ON 11/FEB/2015 PRIOR TO THE EVENT ONSET.
     Route: 050
     Dates: start: 20140213

REACTIONS (1)
  - Colitis ischaemic [Recovered/Resolved]

NARRATIVE: CASE EVENT DATE: 20150304
